FAERS Safety Report 7711987-3 (Version None)
Quarter: 2011Q3

REPORT INFORMATION
  Report Type: 
  Country: None (occurrence: None)
  Receive Date: 20110823
  Receipt Date: 20110809
  Transmission Date: 20111222
  Serious: Yes (Hospitalization, Other)
  Sender: FDA-Public Use
  Company Number: 2011SP037890

PATIENT
  Age: 52 Year
  Sex: Female

DRUGS (2)
  1. RIBAVIRIN [Suspect]
     Indication: HEPATITIS C
     Dates: start: 20110610, end: 20110712
  2. PEG-INTRON [Suspect]
     Indication: HEPATITIS C
     Dates: start: 20110610, end: 20110610

REACTIONS (13)
  - ASTHENIA [None]
  - DISTURBANCE IN ATTENTION [None]
  - CARDIAC DISORDER [None]
  - WEIGHT DECREASED [None]
  - HEART VALVE INCOMPETENCE [None]
  - THROMBOSIS [None]
  - TACHYCARDIA [None]
  - LEUKAEMIA [None]
  - INTERVERTEBRAL DISC PROTRUSION [None]
  - IMMUNE SYSTEM DISORDER [None]
  - HEPATIC CANCER STAGE IV [None]
  - HEPATIC FAILURE [None]
  - ABASIA [None]
